FAERS Safety Report 9269978 (Version 1)
Quarter: 2013Q2

REPORT INFORMATION
  Report Type: Spontaneous
  Country: CO (occurrence: CO)
  Receive Date: 20130503
  Receipt Date: 20130503
  Transmission Date: 20140414
  Serious: No
  Sender: FDA-Public Use
  Company Number: CO-SANOFI-AVENTIS-2013SA042348

PATIENT
  Age: 33 Year
  Sex: Female

DRUGS (5)
  1. LEFLUNOMIDE [Suspect]
     Indication: RHEUMATOID ARTHRITIS
     Route: 048
     Dates: start: 201202, end: 20130322
  2. PREDNISOLONE [Suspect]
     Indication: RHEUMATOID ARTHRITIS
     Route: 048
  3. METHOTREXATE [Suspect]
     Indication: RHEUMATOID ARTHRITIS
     Route: 048
     Dates: start: 201202, end: 20130322
  4. FOLIC ACID [Suspect]
     Indication: PROPHYLAXIS
     Route: 048
  5. CALCITROL [Suspect]
     Indication: PROPHYLAXIS
     Route: 048

REACTIONS (1)
  - Exposure during pregnancy [Unknown]
